FAERS Safety Report 5627101-4 (Version None)
Quarter: 2008Q1

REPORT INFORMATION
  Report Type: 
  Country: None (occurrence: None)
  Receive Date: 20080129
  Receipt Date: 20070627
  Transmission Date: 20080703
  Serious: Yes (Death)
  Sender: FDA-Public Use
  Company Number: 8017406

PATIENT
  Age: 78 Year
  Sex: Male
  Weight: 94.8 kg

DRUGS (12)
  1. KEPPRA [Suspect]
     Dosage: 250 MG 2/D PO
     Route: 048
     Dates: start: 20060109, end: 20060116
  2. KEPPRA [Suspect]
     Dosage: 500 MG 2/D PO
     Route: 048
     Dates: start: 20060116, end: 20060217
  3. DILANTIN [Concomitant]
  4. ETHOSUXIMIDE [Concomitant]
  5. NEURONTIN [Concomitant]
  6. NORVASC [Concomitant]
  7. PRILOSEC [Concomitant]
  8. ZOCOR [Concomitant]
  9. COZAAR [Concomitant]
  10. ATENOLOL [Concomitant]
  11. HYDROCHLOROTHIAZIDE [Concomitant]
  12. TRIAMTERENE [Concomitant]

REACTIONS (2)
  - COMPLETED SUICIDE [None]
  - IRRITABILITY [None]
